FAERS Safety Report 14616404 (Version 2)
Quarter: 2018Q1

REPORT INFORMATION
  Report Type: Spontaneous
  Country: US (occurrence: US)
  Receive Date: 20180309
  Receipt Date: 20180326
  Transmission Date: 20180509
  Serious: No
  Sender: FDA-Public Use
  Company Number: US-PFIZER INC-2018097714

PATIENT
  Age: 75 Year
  Sex: Female

DRUGS (2)
  1. ADVIL [Suspect]
     Active Substance: IBUPROFEN
     Indication: SCIATICA
     Dosage: AS 6000 AT REGULAR
     Dates: start: 2018, end: 20180304
  2. ADVIL MUSCLE AND JOINT [Suspect]
     Active Substance: IBUPROFEN
     Indication: SCIATICA
     Dosage: 400 MG, UNK
     Dates: start: 2018, end: 20180304

REACTIONS (2)
  - Drug ineffective [Not Recovered/Not Resolved]
  - Intentional product misuse [Unknown]

NARRATIVE: CASE EVENT DATE: 2018
